FAERS Safety Report 6723780-9 (Version None)
Quarter: 2010Q2

REPORT INFORMATION
  Report Type: 
  Country: None (occurrence: None)
  Receive Date: 20100511
  Receipt Date: 20100422
  Transmission Date: 20101027
  Serious: Yes (Death)
  Sender: FDA-Public Use
  Company Number: 1-22354469

PATIENT
  Age: 53 Year
  Sex: Female

DRUGS (6)
  1. CETIRIZINE HCL                                 OTC [Suspect]
     Indication: DRUG USE FOR UNKNOWN INDICATION
     Dosage: 10MG ONCE DAILY, ORAL
     Route: 048
  2. XYREM                  (GAMMA-HYDROXYBUTYRATE) [Suspect]
     Indication: NARCOLEPSY
     Dosage: 7.5 G IN 2 NIGHT DOSES, ORAL
     Route: 048
  3. CARISOPRODOL [Suspect]
     Indication: DRUG USE FOR UNKNOWN INDICATION
     Dosage: 350 MG AT BEDTIME;
  4. TRAMADOL HCL [Suspect]
     Indication: DRUG USE FOR UNKNOWN INDICATION
     Dosage: 650 MG 3 TIMES DAILY;
  5. GABAPENTIN [Concomitant]
  6. MODAFINIL [Concomitant]

REACTIONS (4)
  - ACCIDENTAL DEATH [None]
  - ACCIDENTAL OVERDOSE [None]
  - LOSS OF CONSCIOUSNESS [None]
  - SNORING [None]
